FAERS Safety Report 7824119-8 (Version None)
Quarter: 2011Q4

REPORT INFORMATION
  Report Type: 
  Country: None (occurrence: None)
  Receive Date: 20111019
  Receipt Date: 20110802
  Transmission Date: 20120403
  Serious: Yes (Other)
  Sender: FDA-Public Use
  Company Number: US-BAYER-2011-083268

PATIENT
  Sex: Female
  Weight: 87.528 kg

DRUGS (5)
  1. YASMIN [Suspect]
     Dosage: UNK
     Dates: start: 20070101, end: 20080101
  2. YAZ [Suspect]
     Dosage: UNK
     Dates: start: 20020101, end: 20060101
  3. YAZ [Suspect]
     Dosage: UNK
     Dates: start: 20070101, end: 20080101
  4. YASMIN [Suspect]
     Dosage: UNK
     Dates: start: 20020101, end: 20060101
  5. DIETARY SUPPLEMENTS [Concomitant]

REACTIONS (4)
  - MENTAL DISORDER [None]
  - VARICOSE VEIN [None]
  - CHOLECYSTECTOMY [None]
  - CHEST PAIN [None]
